FAERS Safety Report 4909051-1 (Version None)
Quarter: 2006Q1

REPORT INFORMATION
  Report Type: 
  Country: None (occurrence: None)
  Receive Date: 20060213
  Receipt Date: 20060123
  Transmission Date: 20060701
  Serious: Yes (Hospitalization)
  Sender: FDA-Public Use
  Company Number: HQWYE493224JAN06

PATIENT
  Sex: Male

DRUGS (6)
  1. ENBREL [Suspect]
     Indication: RHEUMATOID ARTHRITIS
     Route: 058
     Dates: start: 20051115, end: 20060119
  2. ISONIAZID [Concomitant]
     Dates: start: 20051021
  3. PREDNISOLONE [Concomitant]
     Dates: start: 20051101
  4. SOLETON [Concomitant]
     Dates: start: 20051101
  5. SELBEX [Concomitant]
     Dates: start: 20051101
  6. KETOPROFEN [Concomitant]
     Dates: start: 20051101

REACTIONS (1)
  - RESPIRATORY FAILURE [None]
